FAERS Safety Report 8139684-3 (Version None)
Quarter: 2012Q1

REPORT INFORMATION
  Report Type: 
  Country: None (occurrence: None)
  Receive Date: 20120215
  Receipt Date: 20120209
  Transmission Date: 20120608
  Serious: Yes (Other)
  Sender: FDA-Public Use
  Company Number: PHEH2012US003657

PATIENT
  Sex: Male

DRUGS (1)
  1. FANAPT [Suspect]
     Dosage: 8 MG, UNK
     Route: 048

REACTIONS (3)
  - FALL [None]
  - DIZZINESS [None]
  - HEAD INJURY [None]
